APPROVED DRUG PRODUCT: TEMODAR
Active Ingredient: TEMOZOLOMIDE
Strength: 5MG
Dosage Form/Route: CAPSULE;ORAL
Application: N021029 | Product #001
Applicant: MERCK SHARP AND DOHME CORP
Approved: Aug 11, 1999 | RLD: Yes | RS: No | Type: DISCN